FAERS Safety Report 9047083 (Version 1)
Quarter: 2013Q1

REPORT INFORMATION
  Report Type: Report from Study
  Country: US (occurrence: US)
  Receive Date: 20130130
  Receipt Date: 20130130
  Transmission Date: 20140127
  Serious: No
  Sender: FDA-Public Use
  Company Number: US-ABBOTT-12P-163-0972626-00

PATIENT
  Age: 52 Year
  Sex: Female

DRUGS (9)
  1. HUMIRA 40 MG/0.8 ML PEN [Suspect]
     Indication: COLITIS ULCERATIVE
     Dosage: LOADING DOSE
     Dates: start: 20120817, end: 20120817
  2. HUMIRA 40 MG/0.8 ML PEN [Suspect]
  3. SEROQUEL [Concomitant]
     Indication: PRODUCT USED FOR UNKNOWN INDICATION
     Dosage: AT BEDTIME
  4. TRAZODONE [Concomitant]
     Indication: INSOMNIA
  5. ZOLOFT [Concomitant]
     Indication: DEPRESSION
     Dosage: 150MG DAILY
     Route: 048
  6. WELLBUTRIN [Concomitant]
     Indication: DEPRESSION
  7. UNKNOWN PILL [Concomitant]
     Indication: DYSPEPSIA
  8. MOBIC [Concomitant]
     Indication: COLITIS ULCERATIVE
     Route: 048
  9. PENTASA [Concomitant]
     Indication: COLITIS ULCERATIVE
     Dosage: 8 PILLS PER DAY

REACTIONS (5)
  - Decreased appetite [Not Recovered/Not Resolved]
  - Injection site bruising [Not Recovered/Not Resolved]
  - Abdominal pain [Not Recovered/Not Resolved]
  - Diarrhoea [Not Recovered/Not Resolved]
  - Off label use [Unknown]
